FAERS Safety Report 6709624-X (Version None)
Quarter: 2010Q2

REPORT INFORMATION
  Report Type: 
  Country: None (occurrence: None)
  Receive Date: 20100504
  Receipt Date: 20100426
  Transmission Date: 20101027
  Serious: Yes (Hospitalization)
  Sender: FDA-Public Use
  Company Number: US-ROCHE-698672

PATIENT
  Sex: Female
  Weight: 60 kg

DRUGS (14)
  1. TRASTUZUMAB [Suspect]
     Dosage: LAST DOSE PRIOR TO SAE: 14 APRIL 2010. TOTAL DOSE: 363 MG; FORM VIALS.
     Route: 042
     Dates: start: 20100122
  2. TRASTUZUMAB [Suspect]
     Dosage: LAST DOSE PRIOR TO SAE: 6 MG/KG (TOTAL DOSE 363 MG); HELD IN RESPONSE TO THE EVENT
     Route: 042
     Dates: end: 20100420
  3. TRASTUZUMAB [Suspect]
     Dosage: TOTAL DOSE: 363 MG
     Route: 042
  4. BEVACIZUMAB [Suspect]
     Dosage: LAST DOSE PRIOR TO SAE: 14 APRIL 2010. TOTAL DOSE:907 MG; FORM VIALS
     Route: 042
     Dates: start: 20100122, end: 20100420
  5. BEVACIZUMAB [Suspect]
     Dosage: TOTAL DOSE: 907 MG
     Route: 042
  6. CARBOPLATIN [Suspect]
     Dosage: TOTAL DOSE: 604 MG.FORM:VIAL. DOSE LEVEL: 6 AUC. LAST DOSE PRIOR TO SAE: 14 APRIL 2010.
     Route: 042
     Dates: start: 20100122, end: 20100420
  7. CARBOPLATIN [Suspect]
     Dosage: 6 AUC (TOTAL DOSE: 604 MG)
     Route: 042
  8. DOCETAXEL [Suspect]
     Dosage: TOTAL DOSE: 126 MG.FORM:VIAL. LAST DOSE PRIOR TO SAE: 14 APRIL 2010.
     Route: 042
     Dates: start: 20100122, end: 20100420
  9. DOCETAXEL [Suspect]
     Dosage: TOTAL DOSE: 126 MG
     Route: 042
  10. COMPAZINE [Concomitant]
     Dates: start: 20100121
  11. DECADRON [Concomitant]
     Dates: start: 20100121
  12. HYDROCHLOROTHIAZIDE [Concomitant]
     Dates: start: 20100303
  13. VITAMIN TAB [Concomitant]
  14. LISINOPRIL [Concomitant]

REACTIONS (1)
  - ENTEROCOLITIS INFECTIOUS [None]
